FAERS Safety Report 15404500 (Version 5)
Quarter: 2019Q3

REPORT INFORMATION
  Report Type: Report from Study
  Country: None (occurrence: CN)
  Receive Date: 20180919
  Receipt Date: 20190923
  Transmission Date: 20191004
  Serious: Yes (Life-Threatening)
  Sender: FDA-Public Use
  Company Number: CN-ABBVIE-18P-035-2483242-00

PATIENT
  Age: 78 Year
  Sex: Female
  Weight: 50 kg

DRUGS (47)
  1. DIAMMONIUM GLYCYRRHIZINATE [Concomitant]
     Active Substance: HERBALS\DIAMMONIUM GLYCYRRHIZINATE
     Indication: PROPHYLAXIS
     Dosage: ENTERIC-COATED
     Route: 048
     Dates: start: 20180901, end: 20180928
  2. DEXAMETHASONE SODIUM PHOSPHATE. [Concomitant]
     Active Substance: DEXAMETHASONE SODIUM PHOSPHATE
     Indication: ALLERGY PROPHYLAXIS
     Route: 041
     Dates: start: 20180904, end: 20180928
  3. ZOLPIDEM TARTRATE. [Concomitant]
     Active Substance: ZOLPIDEM TARTRATE
     Indication: INSOMNIA
     Route: 048
     Dates: start: 20180905, end: 20180928
  4. TORASEMIDE [Concomitant]
     Active Substance: TORSEMIDE
     Route: 042
     Dates: start: 20180920, end: 20180921
  5. NORMAL SALINE [Concomitant]
     Active Substance: SODIUM CHLORIDE
     Route: 042
     Dates: start: 20180906, end: 20180908
  6. NORMAL SALINE [Concomitant]
     Active Substance: SODIUM CHLORIDE
     Route: 042
     Dates: start: 20180913, end: 20180913
  7. NORMAL SALINE [Concomitant]
     Active Substance: SODIUM CHLORIDE
     Route: 042
     Dates: start: 20180920, end: 20180920
  8. TORASEMIDE [Concomitant]
     Active Substance: TORSEMIDE
     Indication: OEDEMA
     Route: 042
     Dates: start: 20180906, end: 20180918
  9. 0.9% SODIUM CHLORIDE INJECTION [Concomitant]
     Active Substance: SODIUM CHLORIDE
     Indication: INFECTION
     Dosage: GARGLE
     Dates: start: 20180906, end: 20180913
  10. 0.5% SODIUM BICARBONATE INJECTION [Concomitant]
     Indication: ANTIFUNGAL PROPHYLAXIS
     Dosage: GARGLE
     Dates: start: 20180906, end: 20180913
  11. NORMAL SALINE [Concomitant]
     Active Substance: SODIUM CHLORIDE
     Route: 042
     Dates: start: 20180921, end: 20180921
  12. NORMAL SALINE [Concomitant]
     Active Substance: SODIUM CHLORIDE
     Route: 042
     Dates: start: 20180927, end: 20180927
  13. AMIKACIN SULFATE. [Concomitant]
     Active Substance: AMIKACIN SULFATE
     Indication: LUNG INFECTION
     Route: 041
     Dates: start: 20180903, end: 20180911
  14. 5% DEXTROSE IN WATER [Concomitant]
     Route: 042
     Dates: start: 20180901, end: 20180901
  15. HUMAN ALBUMIN [Concomitant]
     Active Substance: ALBUMIN HUMAN
     Indication: SUPPLEMENTATION THERAPY
     Route: 041
     Dates: start: 20180901, end: 20180918
  16. POTASSIUM CHLORIDE. [Concomitant]
     Active Substance: POTASSIUM CHLORIDE
     Dosage: SUSTAINED-RELEASE
     Route: 048
     Dates: start: 20180904, end: 20180928
  17. SODIUM BICARBONATE. [Concomitant]
     Active Substance: SODIUM BICARBONATE
     Indication: PROPHYLAXIS
     Route: 048
     Dates: start: 20180823, end: 20180827
  18. NORMAL SALINE [Concomitant]
     Active Substance: SODIUM CHLORIDE
     Route: 042
     Dates: start: 20180901, end: 20180903
  19. NORMAL SALINE [Concomitant]
     Active Substance: SODIUM CHLORIDE
     Route: 042
     Dates: start: 20180909, end: 20180910
  20. NORMAL SALINE [Concomitant]
     Active Substance: SODIUM CHLORIDE
     Route: 042
     Dates: start: 20180916, end: 20180916
  21. VENETOCLAX. [Suspect]
     Active Substance: VENETOCLAX
     Route: 048
     Dates: start: 20180915, end: 20180924
  22. CYTARABINE. [Suspect]
     Active Substance: CYTARABINE
     Indication: ACUTE MYELOID LEUKAEMIA
     Dosage: DAYS 1-10 OF EACH CYCLE
     Route: 058
     Dates: start: 20180828, end: 20180906
  23. NORMAL SALINE [Concomitant]
     Active Substance: SODIUM CHLORIDE
     Indication: PROPHYLAXIS
     Route: 042
     Dates: start: 20180824, end: 20180824
  24. NORMAL SALINE [Concomitant]
     Active Substance: SODIUM CHLORIDE
     Route: 042
     Dates: start: 20180828, end: 20180829
  25. NORMAL SALINE [Concomitant]
     Active Substance: SODIUM CHLORIDE
     Route: 042
     Dates: start: 20180904, end: 20180904
  26. NORMAL SALINE [Concomitant]
     Active Substance: SODIUM CHLORIDE
     Route: 042
     Dates: start: 20180905, end: 20180905
  27. NORMAL SALINE [Concomitant]
     Active Substance: SODIUM CHLORIDE
     Route: 042
     Dates: start: 20180912, end: 20180912
  28. LACTATED RINGERS SOLUTION [Concomitant]
     Active Substance: CALCIUM CHLORIDE\POTASSIUM CHLORIDE\SODIUM CHLORIDE\SODIUM LACTATE
     Indication: PROPHYLAXIS
     Dates: start: 20180919, end: 20180919
  29. VENETOCLAX. [Suspect]
     Active Substance: VENETOCLAX
     Route: 048
     Dates: start: 20180830, end: 20180830
  30. VENETOCLAX. [Suspect]
     Active Substance: VENETOCLAX
     Route: 048
     Dates: start: 20180831, end: 20180914
  31. METRONIDAZOLE GARGLES [Concomitant]
     Indication: LUNG INFECTION
     Dosage: TIW
     Route: 048
     Dates: start: 20180906, end: 20180913
  32. TORASEMIDE [Concomitant]
     Active Substance: TORSEMIDE
     Route: 042
     Dates: start: 20180919, end: 20180920
  33. TORASEMIDE [Concomitant]
     Active Substance: TORSEMIDE
     Route: 042
     Dates: start: 20180921, end: 20180928
  34. NORMAL SALINE [Concomitant]
     Active Substance: SODIUM CHLORIDE
     Route: 042
     Dates: start: 20180922, end: 20180924
  35. 5% DEXTROSE IN WATER [Concomitant]
     Indication: PROPHYLAXIS
     Route: 042
     Dates: start: 20180824, end: 20180826
  36. TORASEMIDE [Concomitant]
     Active Substance: TORSEMIDE
     Route: 042
     Dates: start: 20180918, end: 20180920
  37. SODIUM BICARBONATE. [Concomitant]
     Active Substance: SODIUM BICARBONATE
     Route: 042
     Dates: start: 20180827, end: 20180914
  38. SODIUM BICARBONATE. [Concomitant]
     Active Substance: SODIUM BICARBONATE
     Route: 042
     Dates: start: 20180919, end: 20180925
  39. VENETOCLAX. [Suspect]
     Active Substance: VENETOCLAX
     Indication: ACUTE MYELOID LEUKAEMIA
     Route: 048
     Dates: start: 20180828, end: 20180828
  40. VENETOCLAX. [Suspect]
     Active Substance: VENETOCLAX
     Route: 048
     Dates: start: 20180829, end: 20180829
  41. NORMAL SALINE [Concomitant]
     Active Substance: SODIUM CHLORIDE
     Route: 042
     Dates: start: 20180825, end: 20180825
  42. NORMAL SALINE [Concomitant]
     Active Substance: SODIUM CHLORIDE
     Route: 042
     Dates: start: 20180914, end: 20180915
  43. 5% DEXTROSE IN WATER [Concomitant]
     Route: 042
     Dates: start: 20180827, end: 20180830
  44. POTASSIUM CHLORIDE. [Concomitant]
     Active Substance: POTASSIUM CHLORIDE
     Indication: MINERAL SUPPLEMENTATION
     Dosage: SUSTAINED-RELEASE
     Route: 041
     Dates: start: 20180902, end: 20180920
  45. OMEPRAZOLE. [Concomitant]
     Active Substance: OMEPRAZOLE
     Indication: ANTACID THERAPY
     Dates: start: 20180824, end: 20180928
  46. NORMAL SALINE [Concomitant]
     Active Substance: SODIUM CHLORIDE
     Route: 042
     Dates: start: 20180911, end: 20180911
  47. NORMAL SALINE [Concomitant]
     Active Substance: SODIUM CHLORIDE
     Route: 042
     Dates: start: 20180917, end: 20180918

REACTIONS (1)
  - Lung infection [Unknown]

NARRATIVE: CASE EVENT DATE: 20180911
